FAERS Safety Report 8361537-6 (Version None)
Quarter: 2012Q2

REPORT INFORMATION
  Report Type: 
  Country: None (occurrence: None)
  Receive Date: 20120515
  Receipt Date: 20120508
  Transmission Date: 20120825
  Serious: Yes (Hospitalization, Other)
  Sender: FDA-Public Use
  Company Number: JP-ABBOTT-10P-087-0690072-00

PATIENT
  Sex: Male
  Weight: 53 kg

DRUGS (18)
  1. KETOPROFEN [Concomitant]
     Indication: PRODUCT USED FOR UNKNOWN INDICATION
  2. PRAVASTATIN SODIUM [Concomitant]
     Indication: HYPERLIPIDAEMIA
     Dosage: 5 MG DAILY
     Route: 048
  3. RIFAMPICIN [Suspect]
     Indication: TUBERCULOUS PLEURISY
     Dates: start: 20101204, end: 20101223
  4. PREDNISOLONE [Concomitant]
     Indication: RHEUMATOID ARTHRITIS
     Dosage: 5 MG DAILY
     Route: 048
  5. MITIGLINIDE CALCIUM HYDRATE [Concomitant]
     Indication: DIABETES MELLITUS
     Route: 048
  6. CLARITHROMYCIN [Concomitant]
     Indication: INFECTION PROPHYLAXIS
     Route: 048
     Dates: start: 20081023
  7. RIFAMPICIN [Suspect]
     Dates: start: 20110701
  8. ALENDRONATE SODIUM [Concomitant]
     Indication: OSTEOPOROSIS PROPHYLAXIS
     Route: 048
  9. RABEPRAZOLE SODIUM [Concomitant]
     Indication: PROPHYLAXIS AGAINST GASTROINTESTINAL ULCER
     Dosage: 10 MG DAILY
     Route: 048
  10. REBAMIPIDE [Concomitant]
     Indication: PROPHYLAXIS AGAINST GASTROINTESTINAL ULCER
     Route: 048
  11. SODIUM GUALENATE HYDRATE [Concomitant]
     Indication: PRODUCT USED FOR UNKNOWN INDICATION
  12. RIFAMPICIN [Suspect]
     Dates: start: 20110506, end: 20110518
  13. RIFAMPICIN [Suspect]
     Dates: start: 20110601, end: 20110701
  14. HUMIRA [Suspect]
     Indication: RHEUMATOID ARTHRITIS
     Route: 058
     Dates: start: 20100903, end: 20101111
  15. RIFAMPICIN [Suspect]
     Dates: start: 20110518, end: 20110601
  16. SULFAMETHOXAZOLE + TRIMETHOPRIM [Concomitant]
     Indication: INFECTION PROPHYLAXIS
     Route: 048
     Dates: start: 20081023
  17. PREDNISOLONE [Concomitant]
     Dosage: 3 MG DAILY
     Route: 048
  18. DICLOFENAC SODIUM [Concomitant]
     Indication: RHEUMATOID ARTHRITIS
     Route: 054

REACTIONS (13)
  - INFLUENZA LIKE ILLNESS [None]
  - MALAISE [None]
  - PYREXIA [None]
  - TYPE III IMMUNE COMPLEX MEDIATED REACTION [None]
  - ADVERSE DRUG REACTION [None]
  - PLEURAL EFFUSION [None]
  - HEADACHE [None]
  - NASOPHARYNGITIS [None]
  - LABORATORY TEST ABNORMAL [None]
  - TUBERCULOUS PLEURISY [None]
  - RHEUMATOID LUNG [None]
  - LYMPHOCYTOSIS [None]
  - TUBERCULOSIS [None]
